FAERS Safety Report 23183576 (Version 1)
Quarter: 2023Q4

REPORT INFORMATION
  Report Type: Spontaneous
  Country: US (occurrence: US)
  Receive Date: 20231114
  Receipt Date: 20231114
  Transmission Date: 20240110
  Serious: No
  Sender: FDA-Public Use
  Company Number: US-PFIZER INC-202300355363

PATIENT
  Sex: Female

DRUGS (4)
  1. COLESTID [Suspect]
     Active Substance: COLESTIPOL HYDROCHLORIDE
     Indication: Duodenogastric reflux
     Dosage: 1 TABLET
  2. COLESTID [Suspect]
     Active Substance: COLESTIPOL HYDROCHLORIDE
     Dosage: 2 TABLETS
  3. COLESTID [Suspect]
     Active Substance: COLESTIPOL HYDROCHLORIDE
     Dosage: TWO IN THE MORNING AND ONE AT NIGHT
  4. COLESTID [Suspect]
     Active Substance: COLESTIPOL HYDROCHLORIDE
     Dosage: THREE TABLETS THREE TIMES A DAY

REACTIONS (2)
  - Off label use [Unknown]
  - Drug ineffective for unapproved indication [Unknown]
